FAERS Safety Report 5914108-2 (Version None)
Quarter: 2008Q4

REPORT INFORMATION
  Report Type: 
  Country: None (occurrence: None)
  Receive Date: 20081009
  Receipt Date: 20081002
  Transmission Date: 20090506
  Serious: Yes (Other)
  Sender: FDA-Public Use
  Company Number: BR-SANOFI-SYNTHELABO-A01200812150

PATIENT
  Age: 76 Year
  Sex: Female

DRUGS (3)
  1. FLUOROURACIL [Concomitant]
     Indication: GASTRIC CANCER
     Dosage: UNK
     Route: 041
  2. OXALIPLATIN [Suspect]
     Indication: GASTRIC CANCER
     Dosage: UNK
     Route: 041
  3. LEUCOVORIN CALCIUM [Concomitant]
     Indication: GASTRIC CANCER
     Dosage: UNK
     Route: 041

REACTIONS (1)
  - PANCYTOPENIA [None]
